FAERS Safety Report 21437852 (Version 1)
Quarter: 2022Q4

REPORT INFORMATION
  Report Type: Spontaneous
  Country: CN (occurrence: CN)
  Receive Date: 20221011
  Receipt Date: 20221011
  Transmission Date: 20230112
  Serious: Yes (Hospitalization, Other)
  Sender: FDA-Public Use
  Company Number: CN-BRISTOL-MYERS SQUIBB COMPANY-2022-116117

PATIENT
  Age: 81 Year
  Sex: Female

DRUGS (1)
  1. NIVOLUMAB [Suspect]
     Active Substance: NIVOLUMAB
     Indication: Nasopharyngeal cancer
     Dosage: 2MG/KG EVERY 2 WEEKS
     Route: 065

REACTIONS (3)
  - Fulminant type 1 diabetes mellitus [Unknown]
  - Autoimmune thyroiditis [Unknown]
  - Prescribed underdose [Unknown]
